FAERS Safety Report 18297919 (Version 2)
Quarter: 2022Q2

REPORT INFORMATION
  Report Type: Other
  Country: CA (occurrence: CA)
  Receive Date: 20200923
  Receipt Date: 20220621
  Transmission Date: 20220721
  Serious: Yes (Death, Hospitalization)
  Sender: FDA-Public Use
  Company Number: CA-CELLTRION INC.-2020CA026491

PATIENT

DRUGS (27)
  1. RITUXIMAB [Suspect]
     Active Substance: RITUXIMAB
     Indication: Systemic lupus erythematosus
     Route: 042
  2. RITUXIMAB [Suspect]
     Active Substance: RITUXIMAB
     Indication: Rheumatoid arthritis
  3. ACTEMRA [Suspect]
     Active Substance: TOCILIZUMAB
     Indication: Systemic lupus erythematosus
     Route: 065
  4. ACTEMRA [Suspect]
     Active Substance: TOCILIZUMAB
     Indication: Rheumatoid arthritis
  5. ANAKINRA [Suspect]
     Active Substance: ANAKINRA
     Indication: Systemic lupus erythematosus
     Route: 065
  6. ANAKINRA [Suspect]
     Active Substance: ANAKINRA
     Indication: Rheumatoid arthritis
  7. ARAVA [Suspect]
     Active Substance: LEFLUNOMIDE
     Indication: Systemic lupus erythematosus
     Route: 065
  8. ARAVA [Suspect]
     Active Substance: LEFLUNOMIDE
     Indication: Rheumatoid arthritis
  9. ENBREL [Suspect]
     Active Substance: ETANERCEPT
     Indication: Systemic lupus erythematosus
     Route: 065
  10. ENBREL [Suspect]
     Active Substance: ETANERCEPT
     Indication: Rheumatoid arthritis
  11. HUMIRA [Suspect]
     Active Substance: ADALIMUMAB
     Indication: Systemic lupus erythematosus
     Route: 058
  12. HUMIRA [Suspect]
     Active Substance: ADALIMUMAB
     Indication: Rheumatoid arthritis
  13. HYDROXYCHLOROQUINE [Suspect]
     Active Substance: HYDROXYCHLOROQUINE
     Indication: Systemic lupus erythematosus
     Route: 065
  14. HYDROXYCHLOROQUINE [Suspect]
     Active Substance: HYDROXYCHLOROQUINE
     Indication: Rheumatoid arthritis
  15. HYDROXYCHLOROQUINE SULFATE [Suspect]
     Active Substance: HYDROXYCHLOROQUINE SULFATE
     Indication: Systemic lupus erythematosus
     Route: 065
  16. HYDROXYCHLOROQUINE SULFATE [Suspect]
     Active Substance: HYDROXYCHLOROQUINE SULFATE
     Indication: Rheumatoid arthritis
  17. ILARIS [Suspect]
     Active Substance: CANAKINUMAB
     Indication: Systemic lupus erythematosus
     Route: 058
  18. ILARIS [Suspect]
     Active Substance: CANAKINUMAB
     Indication: Rheumatoid arthritis
  19. METHOTREXATE [Suspect]
     Active Substance: METHOTREXATE
     Indication: Systemic lupus erythematosus
     Route: 065
  20. METHOTREXATE [Suspect]
     Active Substance: METHOTREXATE
     Indication: Rheumatoid arthritis
  21. ORENCIA [Suspect]
     Active Substance: ABATACEPT
     Indication: Systemic lupus erythematosus
     Route: 042
  22. ORENCIA [Suspect]
     Active Substance: ABATACEPT
     Indication: Rheumatoid arthritis
  23. REMICADE [Suspect]
     Active Substance: INFLIXIMAB
     Indication: Systemic lupus erythematosus
     Route: 065
  24. REMICADE [Suspect]
     Active Substance: INFLIXIMAB
     Indication: Rheumatoid arthritis
  25. GOLD SODIUM THIOMALATE [Suspect]
     Active Substance: GOLD SODIUM THIOMALATE
     Indication: Rheumatoid arthritis
     Route: 065
  26. SULFASALAZINE [Suspect]
     Active Substance: SULFASALAZINE
     Indication: Systemic lupus erythematosus
     Route: 065
  27. SULFASALAZINE [Suspect]
     Active Substance: SULFASALAZINE
     Indication: Rheumatoid arthritis

REACTIONS (16)
  - Apparent death [Fatal]
  - C-reactive protein increased [Fatal]
  - Deep vein thrombosis [Fatal]
  - Joint swelling [Fatal]
  - Pulmonary embolism [Fatal]
  - Pulmonary thrombosis [Fatal]
  - Red blood cell sedimentation rate increased [Fatal]
  - Pain [Fatal]
  - Renal failure [Fatal]
  - Thrombosis [Fatal]
  - Diverticulitis [Fatal]
  - Sepsis [Fatal]
  - Drug ineffective [Fatal]
  - Intentional product use issue [Fatal]
  - Off label use [Fatal]
  - Off label use [Unknown]
